FAERS Safety Report 7736431-1 (Version None)
Quarter: 2011Q3

REPORT INFORMATION
  Report Type: 
  Country: None (occurrence: None)
  Receive Date: 20110908
  Receipt Date: 20110825
  Transmission Date: 20111222
  Serious: Yes (Hospitalization)
  Sender: FDA-Public Use
  Company Number: GB-MYLANLABS-2011S1017964

PATIENT
  Age: 86 Year
  Sex: Female

DRUGS (7)
  1. RAMIPRIL [Suspect]
     Indication: MYOCARDIAL ISCHAEMIA
     Route: 048
  2. FUROSEMIDE [Concomitant]
     Indication: DIURETIC THERAPY
     Route: 048
  3. GALANTAMINE HYDROBROMIDE [Concomitant]
     Indication: DEMENTIA
     Route: 048
  4. ISOSORBIDE MONONITRATE [Concomitant]
     Indication: ANGINA PECTORIS
     Route: 048
  5. CITALOPRAM HYDROBROMIDE [Concomitant]
     Indication: DEPRESSION
     Route: 048
  6. METOPROLOL SUCCINATE [Suspect]
     Indication: HYPERTENSION
     Route: 048
     Dates: end: 20110802
  7. OMEPRAZOLE [Concomitant]
     Indication: PRODUCT USED FOR UNKNOWN INDICATION
     Route: 048

REACTIONS (1)
  - LARYNGEAL OEDEMA [None]
